FAERS Safety Report 4881263-5 (Version None)
Quarter: 2005Q4

REPORT INFORMATION
  Report Type: 
  Country: None (occurrence: None)
  Receive Date: 20051212
  Receipt Date: 20051028
  Transmission Date: 20060501
  Serious: Yes (Hospitalization)
  Sender: FDA-Public Use
  Company Number: 2005-02243

PATIENT
  Age: 57 Year
  Sex: Female
  Weight: 53.1 kg

DRUGS (3)
  1. VELCADE [Suspect]
     Indication: MULTIPLE MYELOMA
     Dosage: 1.30 MG/M2, INTRAVENOUS
     Route: 042
     Dates: start: 20050628
  2. SCIO-049 [Suspect]
     Indication: MULTIPLE MYELOMA
     Dosage: 60.00 MG, TID
     Dates: start: 20050628
  3. LEVAQUIN [Concomitant]

REACTIONS (1)
  - LISTERIOSIS [None]
